FAERS Safety Report 9714782 (Version 1)
Quarter: 2013Q4

REPORT INFORMATION
  Report Type: Spontaneous
  Country: JP (occurrence: JP)
  Receive Date: 20131126
  Receipt Date: 20131126
  Transmission Date: 20140711
  Serious: Yes (Death, Hospitalization)
  Sender: FDA-Public Use
  Company Number: JP-MYLANLABS-2013S1026186

PATIENT
  Age: 73 Year
  Sex: Female

DRUGS (1)
  1. ALLOPURINOL [Suspect]
     Indication: GOUT
     Dosage: 300MG/DAY
     Route: 065

REACTIONS (3)
  - Toxic epidermal necrolysis [Fatal]
  - Human herpesvirus 6 infection [Not Recovered/Not Resolved]
  - Sepsis [Fatal]
